FAERS Safety Report 10376440 (Version 1)
Quarter: 2014Q3

REPORT INFORMATION
  Report Type: Spontaneous
  Country: GB (occurrence: None)
  Receive Date: 20140806
  Receipt Date: 20140806
  Transmission Date: 20150326
  Serious: Yes (Hospitalization)
  Sender: FDA-Public Use
  Company Number: AUR-APL-2014-08093

PATIENT
  Sex: Female

DRUGS (11)
  1. DOCUSATE [Concomitant]
     Active Substance: DOCUSATE
  2. MEGESTROL ACETATE. [Concomitant]
     Active Substance: MEGESTROL ACETATE
  3. PARACETAMOL [Concomitant]
     Active Substance: ACETAMINOPHEN
  4. QUINNE [Concomitant]
  5. MACGROGOL 3350 [Concomitant]
  6. MORPHINE [Suspect]
     Active Substance: MORPHINE
     Indication: ANALGESIC THERAPY
     Route: 048
  7. CYCLIZINE [Concomitant]
     Active Substance: CYCLIZINE
  8. GABAPENTIN 300MG (GABAPENTIN) UNKNOWN, 300MG [Suspect]
     Active Substance: GABAPENTIN
     Indication: NEURALGIA
     Route: 048
  9. OMEPRAZOLE. [Concomitant]
     Active Substance: OMEPRAZOLE
  10. SENNA (SENNA ALEXANDRIA) [Concomitant]
     Active Substance: SENNA LEAF
  11. LERCANIDIPINE [Concomitant]
     Active Substance: LERCANIDIPINE

REACTIONS (3)
  - Somnolence [None]
  - Confusional state [None]
  - Fall [None]

NARRATIVE: CASE EVENT DATE: 20140706
